FAERS Safety Report 11550827 (Version 1)
Quarter: 2015Q3

REPORT INFORMATION
  Report Type: Spontaneous
  Country: US (occurrence: US)
  Receive Date: 20150903
  Receipt Date: 20150903
  Transmission Date: 20151125
  Serious: No
  Sender: FDA-Public Use
  Company Number: US-ELI_LILLY_AND_COMPANY-US201211002117

PATIENT
  Sex: Female

DRUGS (3)
  1. HUMALOG MIX50/50 [Suspect]
     Active Substance: INSULIN LISPRO
     Indication: TYPE 2 DIABETES MELLITUS
     Dosage: 80 U, PRN
  2. VICTOZA [Concomitant]
     Active Substance: LIRAGLUTIDE
  3. NUTROPIN [Concomitant]
     Active Substance: SOMATROPIN
     Dosage: UNK, UNKNOWN

REACTIONS (2)
  - Incorrect product storage [Unknown]
  - Memory impairment [Unknown]
